FAERS Safety Report 8933524 (Version 1)
Quarter: 2012Q4

REPORT INFORMATION
  Report Type: Report from Study
  Country: GR (occurrence: GR)
  Receive Date: 20121128
  Receipt Date: 20121128
  Transmission Date: 20130627
  Serious: Yes (Hospitalization)
  Sender: FDA-Public Use
  Company Number: GR-UCBSA-071884

PATIENT
  Age: 62 Year
  Sex: Female

DRUGS (4)
  1. CIMZIA [Suspect]
     Indication: RHEUMATOID ARTHRITIS
     Dosage: 200
     Dates: start: 20120525, end: 20121015
  2. METHOTREXATE [Concomitant]
     Indication: RHEUMATOID ARTHRITIS
     Route: 048
     Dates: start: 201010, end: 20121102
  3. FOSAMAX [Concomitant]
     Indication: PROPHYLAXIS
     Route: 048
     Dates: start: 201010, end: 20121102
  4. IDEOS [Concomitant]
     Indication: PROPHYLAXIS
     Route: 048
     Dates: start: 201010, end: 20121102

REACTIONS (1)
  - Hyperamylasaemia [Not Recovered/Not Resolved]
